FAERS Safety Report 17614103 (Version 1)
Quarter: 2020Q2

REPORT INFORMATION
  Report Type: Spontaneous
  Country: US (occurrence: US)
  Receive Date: 20200402
  Receipt Date: 20200402
  Transmission Date: 20200713
  Serious: Yes (Other)
  Sender: FDA-Public Use
  Company Number: US-GILEAD-2020-0456749

PATIENT
  Age: 31 Year
  Sex: Male

DRUGS (10)
  1. PROPRANOLOL [Concomitant]
     Active Substance: PROPRANOLOL HYDROCHLORIDE
  2. ACYCLOVIR [ACICLOVIR] [Concomitant]
     Active Substance: ACYCLOVIR
  3. CLOTRIMAZOLE. [Concomitant]
     Active Substance: CLOTRIMAZOLE
  4. DIAZEPAM. [Concomitant]
     Active Substance: DIAZEPAM
  5. SOFOSBUVIR;VELPATASVIR [Suspect]
     Active Substance: SOFOSBUVIR\VELPATASVIR
     Indication: CHRONIC HEPATITIS C
     Dosage: 1 DOSAGE FORM, QD
     Route: 048
     Dates: start: 201911, end: 202002
  6. AMOXICILLIN. [Concomitant]
     Active Substance: AMOXICILLIN
  7. MUPIROCIN. [Concomitant]
     Active Substance: MUPIROCIN
  8. ACETAMINOPHEN EXTRA STRENGTH [Concomitant]
     Active Substance: ACETAMINOPHEN
  9. BACLOFEN. [Concomitant]
     Active Substance: BACLOFEN
  10. HYDROCODONE/IBUPROFEN [Concomitant]
     Active Substance: HYDROCODONE\IBUPROFEN

REACTIONS (1)
  - Gastrostomy [Recovered/Resolved]

NARRATIVE: CASE EVENT DATE: 202002
